FAERS Safety Report 16317106 (Version 1)
Quarter: 2019Q2

REPORT INFORMATION
  Report Type: Spontaneous
  Country: US (occurrence: US)
  Receive Date: 20190515
  Receipt Date: 20190515
  Transmission Date: 20190711
  Serious: No
  Sender: FDA-Public Use
  Company Number: US-SA-2019SA129842

PATIENT
  Age: 83 Year
  Sex: Female

DRUGS (3)
  1. NASACORT ALLERGY 24HR [Suspect]
     Active Substance: TRIAMCINOLONE ACETONIDE
     Dosage: UNK UNK, UNK
     Route: 065
     Dates: start: 20190508, end: 20190508
  2. RIVAROXABAN [Suspect]
     Active Substance: RIVAROXABAN
     Indication: HEART RATE IRREGULAR
     Dosage: UNK UNK, UNK
     Route: 065
  3. ZANTAC [Suspect]
     Active Substance: RANITIDINE HYDROCHLORIDE
     Dosage: UNK UNK, UNK
     Route: 065

REACTIONS (4)
  - Feeling abnormal [Unknown]
  - Nasal congestion [Unknown]
  - Feeling drunk [Unknown]
  - Dizziness [Unknown]
